FAERS Safety Report 14847461 (Version 1)
Quarter: 2018Q2

REPORT INFORMATION
  Report Type: Spontaneous
  Country: US (occurrence: US)
  Receive Date: 20180504
  Receipt Date: 20180504
  Transmission Date: 20180711
  Serious: Yes (Hospitalization)
  Sender: FDA-Public Use
  Company Number: US-JNJFOC-20180432871

PATIENT
  Age: 59 Year
  Sex: Male
  Weight: 131.54 kg

DRUGS (3)
  1. BETAMETHASONE DIPROPIONATE. [Concomitant]
     Active Substance: BETAMETHASONE DIPROPIONATE
  2. TREMFYA [Suspect]
     Active Substance: GUSELKUMAB
     Indication: PSORIASIS
     Route: 058
     Dates: start: 201709
  3. DALMANE [Concomitant]
     Active Substance: FLURAZEPAM HYDROCHLORIDE

REACTIONS (2)
  - Localised infection [Unknown]
  - Thrombosis [Unknown]

NARRATIVE: CASE EVENT DATE: 201804
